FAERS Safety Report 4955623-8 (Version None)
Quarter: 2006Q1

REPORT INFORMATION
  Report Type: 
  Country: None (occurrence: None)
  Receive Date: 20060328
  Receipt Date: 20060309
  Transmission Date: 20060701
  Serious: Yes (Death)
  Sender: FDA-Public Use
  Company Number: IT-MERCK-0603ITA00018

PATIENT
  Age: 74 Year
  Sex: Male

DRUGS (6)
  1. VYTORIN [Suspect]
     Indication: DYSLIPIDAEMIA
     Route: 048
     Dates: start: 20060223, end: 20060226
  2. PERINDOPRIL ERBUMINE [Concomitant]
     Indication: HYPERTENSIVE HEART DISEASE
     Route: 048
  3. GLYBURIDE AND METFORMIN HYDROCHLORIDE [Concomitant]
     Indication: DIABETES MELLITUS NON-INSULIN-DEPENDENT
     Route: 048
  4. ASPIRIN [Concomitant]
     Indication: PROPHYLAXIS
     Route: 048
  5. FUROSEMIDE SODIUM [Concomitant]
     Route: 048
  6. ZOCOR [Concomitant]
     Indication: DYSLIPIDAEMIA
     Route: 048
     Dates: start: 20040101, end: 20060220

REACTIONS (3)
  - CARDIAC ARREST [None]
  - DEATH [None]
  - INFLUENZA [None]
